FAERS Safety Report 13907377 (Version 1)
Quarter: 2017Q3

REPORT INFORMATION
  Report Type: Spontaneous
  Country: US (occurrence: US)
  Receive Date: 20170825
  Receipt Date: 20170825
  Transmission Date: 20171127
  Serious: No
  Sender: FDA-Public Use
  Company Number: US-ROCHE-1220466

PATIENT
  Sex: Male

DRUGS (1)
  1. NUTROPIN AQ [Suspect]
     Active Substance: SOMATROPIN
     Indication: GROWTH HORMONE DEFICIENCY
     Route: 058

REACTIONS (6)
  - Back pain [Unknown]
  - Fatigue [Unknown]
  - Unevaluable event [Unknown]
  - Vomiting [Unknown]
  - Dehydration [Unknown]
  - Pain in extremity [Unknown]
